FAERS Safety Report 17179762 (Version 1)
Quarter: 2019Q4

REPORT INFORMATION
  Report Type: Spontaneous
  Country: FR (occurrence: FR)
  Receive Date: 20191220
  Receipt Date: 20191220
  Transmission Date: 20200122
  Serious: Yes (Hospitalization)
  Sender: FDA-Public Use
  Company Number: FR-SUN PHARMACEUTICAL INDUSTRIES LTD-2019RR-231373

PATIENT
  Age: 13 Year
  Sex: Female
  Weight: 47 kg

DRUGS (2)
  1. PARACETAMOL [Suspect]
     Active Substance: ACETAMINOPHEN
     Indication: SOMNAMBULISM
     Dosage: 16 G SOIT 340 MG/KG ; IN TOTAL
     Route: 048
     Dates: start: 20190606, end: 20190606
  2. ZOMIGORO 2,5 MG, COMPRIME ORODISPERSIBLE [Concomitant]
     Indication: MIGRAINE
     Dosage: 2.5 MILLIGRAMS, AS NECESSARY
     Route: 048

REACTIONS (7)
  - Coagulation factor V level decreased [Recovered/Resolved]
  - Poisoning deliberate [Recovered/Resolved]
  - Prothrombin time ratio decreased [Recovered/Resolved]
  - Vomiting [Recovered/Resolved]
  - Abdominal pain [Recovered/Resolved]
  - Intentional overdose [Recovered/Resolved]
  - Hypertransaminasaemia [Recovered/Resolved]

NARRATIVE: CASE EVENT DATE: 20190607
